FAERS Safety Report 4773575-0 (Version None)
Quarter: 2005Q3

REPORT INFORMATION
  Report Type: 
  Country: None (occurrence: None)
  Receive Date: 20050920
  Receipt Date: 20050715
  Transmission Date: 20060218
  Serious: No
  Sender: FDA-Public Use
  Company Number: US-BRISTOL-MYERS SQUIBB COMPANY-13040217

PATIENT
  Age: 54 Year
  Sex: Male
  Weight: 118 kg

DRUGS (5)
  1. BUSPAR [Suspect]
     Indication: ANXIETY
     Dates: start: 20040801
  2. FENTANYL CITRATE [Interacting]
     Indication: INTERVERTEBRAL DISC PROTRUSION
     Route: 002
     Dates: start: 20040101, end: 20040101
  3. SIMVASTATIN [Interacting]
     Indication: BLOOD CHOLESTEROL INCREASED
  4. ACEBUTOLOL [Interacting]
     Indication: HEART RATE IRREGULAR
  5. PAROXETINE HCL [Interacting]
     Indication: DEPRESSION

REACTIONS (4)
  - ANAEMIA [None]
  - APPLICATION SITE VESICLES [None]
  - DRUG INTERACTION [None]
  - OEDEMA PERIPHERAL [None]
